FAERS Safety Report 5096681-2 (Version None)
Quarter: 2006Q3

REPORT INFORMATION
  Report Type: 
  Country: None (occurrence: None)
  Receive Date: 20060831
  Receipt Date: 20060817
  Transmission Date: 20061208
  Serious: Yes (Hospitalization)
  Sender: FDA-Public Use
  Company Number: GXKR2006ES05001

PATIENT
  Sex: Male
  Weight: 2.6 kg

DRUGS (4)
  1. PAROXETINE HCL [Suspect]
     Dosage: TRANSPLACENTAL
     Route: 064
  2. LORAZEPAM [Concomitant]
  3. NIFEDIPINE [Concomitant]
  4. RITRODINE [Concomitant]

REACTIONS (13)
  - CHILLS [None]
  - CHOREA [None]
  - CRYING [None]
  - DRUG EXPOSURE DURING PREGNANCY [None]
  - DRUG WITHDRAWAL SYNDROME NEONATAL [None]
  - FEEDING DISORDER NEONATAL [None]
  - HYPERREFLEXIA [None]
  - HYPERTONIA NEONATAL [None]
  - IRRITABILITY [None]
  - NEONATAL DISORDER [None]
  - NEONATAL RESPIRATORY DEPRESSION [None]
  - PREMATURE BABY [None]
  - TEMPERATURE REGULATION DISORDER [None]
